FAERS Safety Report 13853374 (Version 1)
Quarter: 2017Q3

REPORT INFORMATION
  Report Type: Spontaneous
  Country: US (occurrence: US)
  Receive Date: 20170810
  Receipt Date: 20170810
  Transmission Date: 20171127
  Serious: No
  Sender: FDA-Public Use
  Company Number: None

PATIENT
  Age: 49 Year
  Sex: Female

DRUGS (1)
  1. MESNEX [Suspect]
     Active Substance: MESNA

REACTIONS (3)
  - Optic neuritis [None]
  - Vision blurred [None]
  - Migraine [None]

NARRATIVE: CASE EVENT DATE: 20170715
